FAERS Safety Report 23237745 (Version 1)
Quarter: 2023Q4

REPORT INFORMATION
  Report Type: Spontaneous
  Country: US (occurrence: US)
  Receive Date: 20231128
  Receipt Date: 20231128
  Transmission Date: 20240110
  Serious: Yes (Other)
  Sender: FDA-Public Use
  Company Number: US-BRISTOL-MYERS SQUIBB COMPANY-2023-169819

PATIENT
  Age: 74 Year
  Sex: Female

DRUGS (1)
  1. POMALYST [Suspect]
     Active Substance: POMALIDOMIDE
     Indication: Plasma cell myeloma
     Dosage: FOR 21 DOSES
     Route: 048
     Dates: start: 202310

REACTIONS (4)
  - Neuropathy peripheral [Unknown]
  - Peripheral swelling [Unknown]
  - Vision blurred [Unknown]
  - Muscle spasms [Unknown]
